FAERS Safety Report 7445093-2 (Version None)
Quarter: 2011Q2

REPORT INFORMATION
  Report Type: 
  Country: None (occurrence: None)
  Receive Date: 20110429
  Receipt Date: 20091204
  Transmission Date: 20111010
  Serious: Yes (Death, Other)
  Sender: FDA-Public Use
  Company Number: US-BAYER-2011-008391

PATIENT
  Age: 7 Month
  Sex: Male
  Weight: 5.2 kg

DRUGS (70)
  1. PHENOBARBITAL TAB [Concomitant]
     Indication: PRODUCT USED FOR UNKNOWN INDICATION
     Dosage: 5 MG (GIVEN TWICE), UNK
     Route: 042
     Dates: start: 20011204
  2. VERSED [Concomitant]
     Indication: PRODUCT USED FOR UNKNOWN INDICATION
     Dosage: 0.5 MG, UNK (GIVEN 3 TIMES)
     Route: 042
     Dates: start: 20011204
  3. PRIMACOR [Concomitant]
     Indication: PRODUCT USED FOR UNKNOWN INDICATION
     Dosage: 0.75 UNK
  4. ALDACTONE [Concomitant]
     Indication: PRODUCT USED FOR UNKNOWN INDICATION
     Dosage: 6 MG, BID ORO-GASTRIC TUBE
     Dates: start: 20020317
  5. CHLOROTHIAZIDE [Concomitant]
     Dosage: 70 MG, BID VIA ORO-GASTRIC TUBE
     Dates: start: 20020318
  6. PHENYLEPHRINE HCL [Concomitant]
     Indication: PRODUCT USED FOR UNKNOWN INDICATION
     Dosage: 0.5 UNK
  7. GENTAMICIN [Concomitant]
     Indication: PRODUCT USED FOR UNKNOWN INDICATION
  8. INDERAL [Concomitant]
     Indication: PRODUCT USED FOR UNKNOWN INDICATION
     Dosage: 5 MG, QID
     Route: 048
  9. INDERAL [Concomitant]
     Dosage: 4 MG, UNK
     Route: 048
     Dates: start: 20020311
  10. MIDAZOLAM [Concomitant]
     Indication: PRODUCT USED FOR UNKNOWN INDICATION
     Dosage: 0.3-0.5 MG Q3HR PRN
     Route: 042
     Dates: start: 20011203
  11. CEFAZOLIN [Concomitant]
     Indication: PRODUCT USED FOR UNKNOWN INDICATION
     Dosage: 75 MG, QID
  12. METHADONE [Concomitant]
     Indication: PRODUCT USED FOR UNKNOWN INDICATION
     Dosage: 0.3 MG, PRN
     Route: 042
  13. CALCIUM CHLORIDE [Concomitant]
     Indication: PRODUCT USED FOR UNKNOWN INDICATION
     Dosage: 1 ML, UNK
     Route: 042
     Dates: start: 20020312
  14. ATROPINE [Concomitant]
     Indication: PRODUCT USED FOR UNKNOWN INDICATION
     Dosage: 0.3 UNK, UNK
  15. TRASYLOL [Suspect]
     Indication: RIGHT VENTRICULAR OUTLET TRACT PATCH
  16. INDERAL [Concomitant]
     Dosage: 4 MG, UNK
     Route: 048
  17. LORAZEPAM [Concomitant]
     Indication: PRODUCT USED FOR UNKNOWN INDICATION
     Dosage: 0.3 MG, Q4HR PRN PER NG TUBE
     Dates: start: 20011203
  18. DOPAMINE HCL [Concomitant]
     Indication: PRODUCT USED FOR UNKNOWN INDICATION
     Dosage: 6 MCG/KG/MIN, 7.5 CC HOUR
     Route: 042
  19. ZOSYN [Concomitant]
     Indication: PRODUCT USED FOR UNKNOWN INDICATION
     Dosage: 250 MG/KG, QD, DIVIDED Q8HR
  20. THIAMINE [Concomitant]
     Indication: PRODUCT USED FOR UNKNOWN INDICATION
     Dosage: 6 MG Q6HR OVER 30MINS, UNK
     Route: 042
     Dates: start: 20020312
  21. CAPITAL W/CODEINE [Concomitant]
     Indication: PAIN
     Dosage: UNK UNK, Q4HR PRN VIA ORO-GASTRIC TUBE
  22. AMPHOTERICIN B [Concomitant]
     Indication: PRODUCT USED FOR UNKNOWN INDICATION
     Dosage: 2MG IN 20CC D2.5 WATER
     Route: 033
     Dates: start: 20020403
  23. ANCEF [Concomitant]
     Indication: PRODUCT USED FOR UNKNOWN INDICATION
     Dosage: 75 UNK
     Route: 042
     Dates: start: 20020312
  24. TRASYLOL [Suspect]
     Indication: FALLOT'S TETRALOGY
     Dosage: 10.4 UNK
     Route: 042
     Dates: start: 20020312, end: 20020312
  25. ENFACARE [Concomitant]
     Indication: PRODUCT USED FOR UNKNOWN INDICATION
     Dosage: START AT 10CC, THEN 5CC AS TOLERATED, MAX 60CC Q3HR
     Route: 048
     Dates: start: 20011204
  26. CHLOROTHIAZIDE [Concomitant]
     Indication: PRODUCT USED FOR UNKNOWN INDICATION
     Dosage: 70 MG, BID
     Route: 042
  27. DOBUTAMINE HYDROCHLORIDE [Concomitant]
     Indication: PRODUCT USED FOR UNKNOWN INDICATION
  28. KEFLEX [Concomitant]
     Dosage: 75 MG, UNK
     Dates: start: 20020311
  29. RIOPAN [Concomitant]
     Indication: PRODUCT USED FOR UNKNOWN INDICATION
     Dosage: 0.5CC/KG Q2HR, CLAMP ORO-GASTRIC TUBE FOR 15MIN AFTER EACH DOSE
     Dates: start: 20020312
  30. NORCURON [Concomitant]
     Dosage: UNK MULTIPLE DOSES
  31. BICARBONAT [Concomitant]
     Indication: PRODUCT USED FOR UNKNOWN INDICATION
     Dosage: 3 ML PUSH, UNK
     Route: 042
     Dates: start: 20020312
  32. PROTAMINE SULFATE [Concomitant]
     Indication: PRODUCT USED FOR UNKNOWN INDICATION
     Dosage: 1.55 ML, UNK
     Route: 042
     Dates: start: 20020312
  33. LIPIDS [Concomitant]
     Indication: PRODUCT USED FOR UNKNOWN INDICATION
     Dosage: UNK
  34. TRASYLOL [Suspect]
     Indication: CARDIAC OPERATION
     Dosage: 10 ML, Q1HR
     Route: 042
     Dates: start: 20020312, end: 20020312
  35. REGLAN [Concomitant]
     Indication: PRODUCT USED FOR UNKNOWN INDICATION
     Dosage: 0.3 MG, QID
     Route: 048
  36. DOPAMINE HCL [Concomitant]
     Dosage: 7.5 UNK
     Route: 042
     Dates: start: 20020312
  37. CEFAZOLIN [Concomitant]
     Dosage: 75 MG, QID
     Route: 042
     Dates: start: 20020312
  38. KEFLEX [Concomitant]
     Indication: PRODUCT USED FOR UNKNOWN INDICATION
     Dosage: 75 MG, UNK
     Dates: start: 20020311
  39. THEOPHYLLINE [Concomitant]
     Indication: PRODUCT USED FOR UNKNOWN INDICATION
     Dosage: 12 MG, UNK
     Dates: start: 20020311
  40. SOLU-MEDROL [Concomitant]
     Indication: PRODUCT USED FOR UNKNOWN INDICATION
     Dosage: 60 MG, UNK
     Dates: start: 20020311
  41. NIPRIDE [Concomitant]
     Indication: PRODUCT USED FOR UNKNOWN INDICATION
     Dosage: TO KEEP B/P } 60 - 65, NOT TO EXCEED 6 MCG/KG/MIN
     Route: 042
     Dates: start: 20020312
  42. CRYOPRECIPITATES [Concomitant]
     Indication: PRODUCT USED FOR UNKNOWN INDICATION
     Dosage: 25 ML OVER 1HR, UNK
     Dates: start: 20020312
  43. ACETAMINOPHEN [Concomitant]
     Indication: PAIN
     Dosage: 60-75 MG, Q4HR PRN VIA ORO-GASTRIC TUBE
     Dates: start: 20020317
  44. FRESH FROZEN PLASMA [Concomitant]
     Indication: PRODUCT USED FOR UNKNOWN INDICATION
     Dosage: 10 UNK, UNK
     Dates: start: 20020312
  45. EPOGEN [Concomitant]
     Indication: PRODUCT USED FOR UNKNOWN INDICATION
     Dosage: UNK
  46. SPIRONOLACTONE [Concomitant]
     Indication: PRODUCT USED FOR UNKNOWN INDICATION
     Dosage: 6 MG, BID
  47. FENTANYL [Concomitant]
     Indication: PRODUCT USED FOR UNKNOWN INDICATION
     Dosage: 0.5 MCG/KG/HR
     Route: 042
     Dates: start: 20020312
  48. NATRECOR [Concomitant]
     Indication: PRODUCT USED FOR UNKNOWN INDICATION
     Dosage: 0.4 MCG, UNK
     Route: 042
     Dates: start: 20020317
  49. HALOTHANE [Concomitant]
     Indication: PRODUCT USED FOR UNKNOWN INDICATION
     Dosage: UNK
  50. METHOHEXITAL [Concomitant]
     Indication: PRODUCT USED FOR UNKNOWN INDICATION
     Dosage: UNK MULTIPLE DOSES
  51. LASIX [Concomitant]
     Indication: PRODUCT USED FOR UNKNOWN INDICATION
     Dosage: 10 MG, UNK
     Route: 042
     Dates: start: 20020312
  52. MORPHINE [Concomitant]
     Indication: PRODUCT USED FOR UNKNOWN INDICATION
     Dosage: 0.15 MG Q1-2HR, PRN
     Route: 058
  53. PHENYLEPHRINE [PHENYLEPHRINE] [Concomitant]
     Indication: PRODUCT USED FOR UNKNOWN INDICATION
     Dosage: 10MG/250CC D5W, 0.5-1 CC EVERY 3 HOURS PRN
     Route: 042
     Dates: start: 20011203
  54. CHLORAL HYDRATE [Concomitant]
     Indication: PRODUCT USED FOR UNKNOWN INDICATION
     Dosage: 100 MG X1, UNK
     Route: 048
     Dates: start: 20011203
  55. DOPAMINE HCL [Concomitant]
     Dosage: UNK MULTIPLE DOSES
  56. SOLU-MEDROL [Concomitant]
     Dosage: 60 MG, UNK
     Dates: start: 20020311
  57. NIPRIDE [Concomitant]
     Dosage: UNK MULTIPLE DOSES
  58. RANITIDINE [Concomitant]
     Indication: PRODUCT USED FOR UNKNOWN INDICATION
     Dosage: 5 MG, TID
     Route: 048
     Dates: start: 20020323
  59. KETAMINE HCL [Concomitant]
     Indication: PRODUCT USED FOR UNKNOWN INDICATION
     Dosage: 5 UNK, UNK
  60. TRASYLOL [Suspect]
     Indication: VENTRICULAR SEPTAL DEFECT REPAIR
     Dosage: 44.5 ML, UNK
     Route: 042
     Dates: start: 20020312, end: 20020312
  61. ZANTAC [Concomitant]
     Indication: PRODUCT USED FOR UNKNOWN INDICATION
     Dosage: 6 MG, TID
     Route: 048
  62. ERYTHROMYCIN [Concomitant]
     Indication: PRODUCT USED FOR UNKNOWN INDICATION
     Dosage: UNK UNK, ONCE
     Route: 047
     Dates: start: 20010829
  63. NORCURON [Concomitant]
     Indication: PRODUCT USED FOR UNKNOWN INDICATION
     Dosage: 0.6 MG Q30MINS, PRN TO KEEP PARALYZED
     Route: 042
     Dates: start: 20020312
  64. FENTANYL [Concomitant]
     Dosage: UNK MULTIPLE DOSES
  65. ZAROXOLYN [Concomitant]
     Indication: PRODUCT USED FOR UNKNOWN INDICATION
     Dosage: 1 MG ORO-GASTRIC TUBE, UNK
     Dates: start: 20020313
  66. CHLOROTHIAZIDE [Concomitant]
     Dosage: 70 MG VIA ORO-GASTRIC TUBE
     Dates: start: 20020318
  67. VANCOMYCIN [Concomitant]
     Indication: PRODUCT USED FOR UNKNOWN INDICATION
     Dosage: 75 MG, ONCE
     Route: 042
     Dates: start: 20020322
  68. CEFTAZIDIME [Concomitant]
     Indication: PRODUCT USED FOR UNKNOWN INDICATION
     Dosage: 250 MG, QD X 2 DOSES
     Route: 042
     Dates: start: 20020323
  69. FLUCONAZOLE [Concomitant]
     Indication: PRODUCT USED FOR UNKNOWN INDICATION
     Dosage: 20 MG, QD
     Route: 042
     Dates: start: 20020326
  70. POLYVIT [Concomitant]
     Indication: PRODUCT USED FOR UNKNOWN INDICATION
     Dosage: 0.5 ML, UNK
     Route: 048
     Dates: start: 20011127

REACTIONS (6)
  - RENAL FAILURE ACUTE [None]
  - DEATH [None]
  - RENAL INJURY [None]
  - PAIN [None]
  - RENAL FAILURE [None]
  - INJURY [None]
